FAERS Safety Report 18611076 (Version 4)
Quarter: 2021Q1

REPORT INFORMATION
  Report Type: Spontaneous
  Country: US (occurrence: US)
  Receive Date: 20201214
  Receipt Date: 20210326
  Transmission Date: 20210419
  Serious: Yes (Other)
  Sender: FDA-Public Use
  Company Number: US-PFIZER INC-2019271155

PATIENT
  Age: 62 Year
  Sex: Female
  Weight: 77 kg

DRUGS (12)
  1. CYMBALTA [Concomitant]
     Active Substance: DULOXETINE HYDROCHLORIDE
     Indication: DEPRESSION
     Dosage: 60 MG, DAILY
  2. ZUBSOLV [Concomitant]
     Active Substance: BUPRENORPHINE HYDROCHLORIDE\NALOXONE HYDROCHLORIDE
     Dosage: 5.7MG/1.4MG
  3. LYRICA [Suspect]
     Active Substance: PREGABALIN
     Indication: FIBROMYALGIA
     Dosage: 100 MG, 3X/DAY
     Route: 048
  4. ZUBSOLV [Concomitant]
     Active Substance: BUPRENORPHINE HYDROCHLORIDE\NALOXONE HYDROCHLORIDE
     Dosage: 1 DF, 2X/DAY (8.6 ? 2.1 MG)
     Route: 060
  5. KLOR?CON [Concomitant]
     Active Substance: POTASSIUM CHLORIDE
     Dosage: 10 MEQ, 2X/DAY
  6. FLEXERIL [Concomitant]
     Active Substance: CYCLOBENZAPRINE HYDROCHLORIDE
     Indication: MUSCLE RELAXANT THERAPY
     Dosage: 10 MG, 1X/DAY (AT BED TIME)
  7. LYRICA [Suspect]
     Active Substance: PREGABALIN
     Dosage: 100 MG, 3X/DAY
     Route: 048
     Dates: start: 202102
  8. IMDUR [Concomitant]
     Active Substance: ISOSORBIDE MONONITRATE
     Indication: CARDIAC DISORDER
     Dosage: 30 MG, UNK
  9. TOPROL XL [Concomitant]
     Active Substance: METOPROLOL SUCCINATE
     Indication: HYPERTENSION
     Dosage: 25 MG, UNK
  10. BUPRENORPHINE. [Concomitant]
     Active Substance: BUPRENORPHINE
  11. LIBRIUM [Concomitant]
     Active Substance: CHLORDIAZEPOXIDE HYDROCHLORIDE
     Indication: ANXIETY
     Dosage: 25 MG, 1X/DAY (AS NEEDED)
     Route: 048
  12. LYRICA [Suspect]
     Active Substance: PREGABALIN
     Dosage: 1 DF, DAILY (ONE A DAY)

REACTIONS (4)
  - Feeling abnormal [Unknown]
  - Drug withdrawal syndrome [Unknown]
  - Cataract [Unknown]
  - Intentional product misuse [Unknown]
